FAERS Safety Report 5604756-1 (Version None)
Quarter: 2008Q1

REPORT INFORMATION
  Report Type: 
  Country: None (occurrence: None)
  Receive Date: 20080128
  Receipt Date: 20080122
  Transmission Date: 20080703
  Serious: Yes (Life-Threatening, Hospitalization)
  Sender: FDA-Public Use
  Company Number: PHEH2007US06245

PATIENT
  Sex: Female

DRUGS (1)
  1. ZELNORM [Suspect]

REACTIONS (9)
  - ABDOMINAL PAIN [None]
  - CARDIAC DISORDER [None]
  - COLECTOMY [None]
  - EATING DISORDER [None]
  - ESCHERICHIA INFECTION [None]
  - GAIT DISTURBANCE [None]
  - INTESTINAL ISCHAEMIA [None]
  - PAIN [None]
  - PALPITATIONS [None]
